FAERS Safety Report 7492321-3 (Version None)
Quarter: 2011Q2

REPORT INFORMATION
  Report Type: 
  Country: None (occurrence: None)
  Receive Date: 20110519
  Receipt Date: 20110428
  Transmission Date: 20111010
  Serious: Yes (Hospitalization, Other)
  Sender: FDA-Public Use
  Company Number: US-BAYER-201019429NA

PATIENT
  Age: 20 Year
  Sex: Female
  Weight: 74 kg

DRUGS (1)
  1. YAZ [Suspect]
     Indication: ORAL CONTRACEPTION
     Route: 048
     Dates: start: 20070601, end: 20080401

REACTIONS (7)
  - DYSPNOEA [None]
  - PLEURISY [None]
  - UPPER RESPIRATORY TRACT INFECTION [None]
  - THROMBOSIS [None]
  - PULMONARY EMBOLISM [None]
  - CHEST PAIN [None]
  - NON-CARDIAC CHEST PAIN [None]
